FAERS Safety Report 21788851 (Version 3)
Quarter: 2023Q2

REPORT INFORMATION
  Report Type: Spontaneous
  Country: US (occurrence: US)
  Receive Date: 20221228
  Receipt Date: 20230505
  Transmission Date: 20230721
  Serious: No
  Sender: FDA-Public Use
  Company Number: US-IDORSIA-002596-2022-US

PATIENT
  Age: 76 Year
  Sex: Female

DRUGS (1)
  1. QUVIVIQ [Suspect]
     Active Substance: DARIDOREXANT
     Indication: Insomnia
     Dosage: 50 MG, QD
     Route: 048
     Dates: start: 20221209

REACTIONS (5)
  - Productive cough [Not Recovered/Not Resolved]
  - Sleep disorder [Recovering/Resolving]
  - Throat irritation [Not Recovered/Not Resolved]
  - Therapeutic product effect variable [Unknown]
  - Middle insomnia [Recovering/Resolving]

NARRATIVE: CASE EVENT DATE: 20221209
